FAERS Safety Report 9772897 (Version 1)
Quarter: 2013Q4

REPORT INFORMATION
  Report Type: Report from Study
  Country: CA (occurrence: CA)
  Receive Date: 20131219
  Receipt Date: 20131219
  Transmission Date: 20140711
  Serious: Yes (Death)
  Sender: FDA-Public Use
  Company Number: CA-UCBSA-105630

PATIENT
  Age: 61 Year
  Sex: Female
  Weight: 66 kg

DRUGS (31)
  1. CIMZIA [Suspect]
     Indication: RHEUMATOID ARTHRITIS
     Route: 058
     Dates: start: 20130729, end: 20131204
  2. CIMZIA [Suspect]
     Indication: RHEUMATOID ARTHRITIS
     Route: 058
     Dates: start: 20130201, end: 20130719
  3. CIMZIA [Suspect]
     Indication: RHEUMATOID ARTHRITIS
     Dosage: ONCE IN 2 WEEKS X3
     Route: 058
     Dates: start: 20121221, end: 20130118
  4. PREDNISONE [Concomitant]
     Indication: RHEUMATOID ARTHRITIS
     Route: 048
  5. WARFARIN [Concomitant]
     Dosage: 2-4 MG ONCE IN A DAY
     Route: 048
  6. METFORMIN [Concomitant]
     Indication: DIABETES MELLITUS
     Route: 048
  7. DILTIAZEM [Concomitant]
     Indication: HYPERTENSION
     Route: 048
  8. FORTEO [Concomitant]
  9. ASA [Concomitant]
  10. HCTZD [Concomitant]
  11. CYMBALTA [Concomitant]
  12. PAROXITINE [Concomitant]
  13. ZOPLICONE [Concomitant]
     Dosage: DOSE: 7.5 MG HS
  14. ELAVIL [Concomitant]
     Dosage: DOSE: 50 MG HS
  15. ROFUVASTAIN [Concomitant]
  16. ELTROXIN [Concomitant]
  17. DOMPERIDONE [Concomitant]
  18. DICETEL [Concomitant]
  19. MAGNESIUM [Concomitant]
  20. LYRICA [Concomitant]
  21. BETAHISTINE [Concomitant]
  22. PERCOCETTE [Concomitant]
     Dosage: DOSE: 2 TID
  23. VITAMIN D [Concomitant]
  24. IRON SULFATE [Concomitant]
     Dosage: TID
  25. CALCIUM [Concomitant]
  26. FOLIC ACID [Concomitant]
  27. VITAMIN C [Concomitant]
  28. NITRO SPRAY [Concomitant]
     Dosage: PRN
  29. ATROVENT [Concomitant]
  30. AIROMIR [Concomitant]
  31. ADVAIR [Concomitant]

REACTIONS (2)
  - Myocardial infarction [Fatal]
  - Inappropriate schedule of drug administration [Recovered/Resolved]
